APPROVED DRUG PRODUCT: TAZAROTENE
Active Ingredient: TAZAROTENE
Strength: 0.045%
Dosage Form/Route: LOTION;TOPICAL
Application: A215393 | Product #001
Applicant: PADAGIS ISRAEL PHARMACEUTICALS LTD
Approved: Jul 29, 2025 | RLD: No | RS: No | Type: DISCN